FAERS Safety Report 4971905-8 (Version None)
Quarter: 2006Q2

REPORT INFORMATION
  Report Type: 
  Country: None (occurrence: None)
  Receive Date: 20060413
  Receipt Date: 20060403
  Transmission Date: 20061013
  Serious: Yes (Hospitalization)
  Sender: FDA-Public Use
  Company Number: US-MERCK-0604USA00993

PATIENT
  Age: 58 Year
  Sex: Male
  Weight: 82 kg

DRUGS (18)
  1. VIOXX [Suspect]
     Indication: SPONDYLITIS
     Route: 048
     Dates: start: 20010101, end: 20010501
  2. VIOXX [Suspect]
     Indication: BACK PAIN
     Route: 048
     Dates: start: 20010101, end: 20010501
  3. TRIMOX [Concomitant]
     Route: 065
  4. WELLBUTRIN [Concomitant]
     Indication: ANXIETY
     Route: 065
  5. CYCLOBENZAPRINE HYDROCHLORIDE [Concomitant]
     Indication: MULTIPLE SCLEROSIS
     Route: 065
  6. AMBIEN [Concomitant]
     Indication: SLEEP DISORDER
     Route: 065
  7. PAXIL [Concomitant]
     Indication: ANXIETY
     Route: 065
  8. ZOVIRAX [Concomitant]
     Route: 065
  9. XANAX [Concomitant]
     Indication: ANXIETY
     Route: 065
  10. GABITRIL [Concomitant]
     Indication: ANXIETY
     Route: 065
  11. BUSPAR [Concomitant]
     Indication: ANXIETY
     Route: 065
  12. ZOLOFT [Concomitant]
     Indication: ANXIETY
     Route: 065
  13. DITROPAN [Concomitant]
     Indication: BENIGN PROSTATIC HYPERPLASIA
     Route: 065
  14. ROXICET [Concomitant]
     Indication: PAIN
     Route: 065
     Dates: start: 20010501
  15. IBUPROFEN [Concomitant]
     Indication: PAIN
     Route: 065
     Dates: start: 20010501
  16. ATENOLOL [Concomitant]
     Indication: CARDIAC DISORDER
     Route: 065
     Dates: start: 19991001, end: 20020801
  17. ZOCOR [Concomitant]
     Route: 065
     Dates: start: 19991101
  18. ADVIL [Concomitant]
     Indication: PAIN
     Route: 065
     Dates: start: 20010501, end: 20010501

REACTIONS (5)
  - CARDIAC DISORDER [None]
  - MULTIPLE SCLEROSIS [None]
  - MYOCARDIAL INFARCTION [None]
  - OVERDOSE [None]
  - PROSTATIC DISORDER [None]
